FAERS Safety Report 6798394-5 (Version None)
Quarter: 2010Q2

REPORT INFORMATION
  Report Type: 
  Country: None (occurrence: None)
  Receive Date: 20100622
  Receipt Date: 20100608
  Transmission Date: 20101027
  Serious: Yes (Death, Hospitalization)
  Sender: FDA-Public Use
  Company Number: KV201000058

PATIENT
  Age: 61 Year
  Sex: Female
  Weight: 63.5 kg

DRUGS (63)
  1. MORPHINE SULFATE [Suspect]
     Indication: PAIN
     Dosage: 60 MG, BID, ORAL
     Route: 048
     Dates: start: 20080630, end: 20080709
  2. MORPHINE SULFATE [Suspect]
     Indication: PAIN
     Dosage: 15 MG Q4H PRN PAIN, ORAL
     Route: 048
     Dates: start: 20080513, end: 20080709
  3. MORPHINE SULFATE [Suspect]
     Indication: PAIN
     Dosage: 10 MG, PRN Q 4 HOURS, ORAL
     Route: 048
     Dates: start: 20080515, end: 20080710
  4. MORPHINE SULFATE (AVINZA ER) [Suspect]
     Indication: PAIN
     Dosage: 30 MG, Q8H, ORAL
     Route: 048
     Dates: start: 20080613, end: 20080630
  5. NEUPOGEN [Concomitant]
  6. DIAZIDE /00413701/ (GLICLAZIDE) [Concomitant]
  7. ATENOLOL [Concomitant]
  8. EFEXOR XR /01233802/ (VENLAFAXINE HYDROCHLORIDE) [Concomitant]
  9. CLARITIN /00917501/ (LORATADINE) [Concomitant]
  10. K-LYTE /00067301/ (CITRIC ACID, CYCLAMIC ACID, POTASSIUM BICARBONATE) [Concomitant]
  11. TRAZODONE HCL [Concomitant]
  12. BACTRIM [Concomitant]
  13. PROTONIX [Concomitant]
  14. PHENERGAN /00033001/ (PROMETHAZINE) [Concomitant]
  15. DILAUDID [Concomitant]
  16. MEGACE [Concomitant]
  17. COMPAZINE /00013302/ (PROCHLORPERAZINE EDISYLATE) [Concomitant]
  18. ALEVE [Concomitant]
  19. DIOVAN [Concomitant]
  20. REGLAN /00041901/ (METOCLOPRAMIDE) [Concomitant]
  21. GEMZAR [Concomitant]
  22. TOPROL-XL [Concomitant]
  23. MOTRIN [Concomitant]
  24. MOBIC [Concomitant]
  25. ZOLOFT [Concomitant]
  26. LEVAQUIN [Concomitant]
  27. VENTOLIN [Concomitant]
  28. SYMBICORT [Concomitant]
  29. DARVOCET [Concomitant]
  30. POTASSIUM CHLORIDE [Concomitant]
  31. MAGNESIUM (MAGNESIUM) [Concomitant]
  32. OXYGEN (OXYGEN) [Concomitant]
  33. XANAX [Concomitant]
  34. TYLENOL /00020001/ (PARACETAMOL) [Concomitant]
  35. BISACODYL (BISACODYL) [Concomitant]
  36. FLUOROURACIL [Concomitant]
  37. ALBUTEROL /00139501/ (SALBUTAMOL) [Concomitant]
  38. LEUCOVORIN /00566701/ (FOLINIC ACID) [Concomitant]
  39. ZOFRAN /00955301/ (ONDANSETRON) [Concomitant]
  40. DECADRON [Concomitant]
  41. ANZEMET [Concomitant]
  42. ARANESP [Concomitant]
  43. SUDAFED /00070002/ (OXYMETAZOLINE HYDROCHLORIDE) [Concomitant]
  44. PREDNISONE TAB [Concomitant]
  45. VICODIN [Concomitant]
  46. MORPHINE [Concomitant]
  47. ATIVAN [Concomitant]
  48. LOVENOX [Concomitant]
  49. TORADOL [Concomitant]
  50. COUMADIN [Concomitant]
  51. DEMEROL [Concomitant]
  52. VERSED [Concomitant]
  53. CEFOTETAN [Concomitant]
  54. ENALAPRIL MALEATE [Concomitant]
  55. HEPARIN [Concomitant]
  56. HYDROMORPHONE HCL [Concomitant]
  57. NALOXONE [Concomitant]
  58. LOPRESSOR [Concomitant]
  59. SANDOSTATIN /00821001/ (OCTREOTIDE) [Concomitant]
  60. DIPHENHYDRAMINE HCL [Concomitant]
  61. PERCOCET [Concomitant]
  62. HALDOL /00027401/ (HALOPERIDOL) [Concomitant]
  63. FENTANYL [Concomitant]

REACTIONS (40)
  - ACUTE PRERENAL FAILURE [None]
  - ANAEMIA [None]
  - ANXIETY [None]
  - BACK PAIN [None]
  - CHEST DISCOMFORT [None]
  - DECREASED APPETITE [None]
  - DEHYDRATION [None]
  - DEPRESSION [None]
  - DIARRHOEA [None]
  - DRUG INEFFECTIVE [None]
  - DYSPNOEA [None]
  - GASTROOESOPHAGEAL REFLUX DISEASE [None]
  - HAEMATURIA [None]
  - HEADACHE [None]
  - HYPERCHLORAEMIA [None]
  - HYPERTENSION [None]
  - HYPOMAGNESAEMIA [None]
  - HYPOTENSION [None]
  - HYPOXIA [None]
  - INCREASED UPPER AIRWAY SECRETION [None]
  - INSOMNIA [None]
  - METASTASES TO LUNG [None]
  - METASTASES TO LYMPH NODES [None]
  - MUSCLE SPASMS [None]
  - MUSCULAR WEAKNESS [None]
  - NASOPHARYNGITIS [None]
  - NAUSEA [None]
  - NECK PAIN [None]
  - NERVOUSNESS [None]
  - OEDEMA PERIPHERAL [None]
  - ORTHOPNOEA [None]
  - OSTEOARTHRITIS [None]
  - PAIN [None]
  - PAIN IN EXTREMITY [None]
  - PRURITUS [None]
  - PYREXIA [None]
  - RESPIRATORY DISTRESS [None]
  - SWELLING FACE [None]
  - TREMOR [None]
  - WEIGHT DECREASED [None]
